FAERS Safety Report 4900832-7 (Version None)
Quarter: 2006Q1

REPORT INFORMATION
  Report Type: 
  Country: None (occurrence: None)
  Receive Date: 20060201
  Receipt Date: 20060118
  Transmission Date: 20060701
  Serious: Yes (Hospitalization)
  Sender: FDA-Public Use
  Company Number: AU200601003541

PATIENT
  Age: 12 Year
  Sex: Female

DRUGS (5)
  1. FLUOXETINE [Suspect]
     Indication: DEPRESSION
     Dosage: 20 MG, DAILY (1/D), ORAL
     Route: 048
     Dates: start: 20050801
  2. BROMODRIPTINE (BROMOCRIPTINE) [Concomitant]
  3. LEVOTHYROXINE SODIUM [Concomitant]
  4. METFORMIN HCL [Concomitant]
  5. MINERALOCORTICSTEROIDS [Concomitant]

REACTIONS (1)
  - TEMPERATURE REGULATION DISORDER [None]
